FAERS Safety Report 11073293 (Version 2)
Quarter: 2015Q2

REPORT INFORMATION
  Report Type: Spontaneous
  Country: US (occurrence: US)
  Receive Date: 20150428
  Receipt Date: 20150504
  Transmission Date: 20150821
  Serious: Yes (Hospitalization)
  Sender: FDA-Public Use
  Company Number: US-UNITED THERAPEUTICS-UNT-2015-004065

PATIENT
  Age: 45 Year
  Sex: Female
  Weight: 81.63 kg

DRUGS (2)
  1. REMODULIN [Suspect]
     Active Substance: TREPROSTINIL
     Indication: PULMONARY ARTERIAL HYPERTENSION
     Dosage: 0.00125 ?G/KG/MIN, CONTINUING
     Route: 041
     Dates: start: 20150403
  2. REMODULIN [Suspect]
     Active Substance: TREPROSTINIL
     Dosage: 0.01375 ?G/KG, CONTINUING
     Route: 041

REACTIONS (7)
  - Epistaxis [Unknown]
  - Headache [Unknown]
  - Dermatitis contact [Unknown]
  - Chest pain [Unknown]
  - Diarrhoea [Unknown]
  - Nausea [Unknown]
  - Injection site pain [Unknown]

NARRATIVE: CASE EVENT DATE: 201504
